FAERS Safety Report 6535175-1 (Version None)
Quarter: 2010Q1

REPORT INFORMATION
  Report Type: 
  Country: None (occurrence: None)
  Receive Date: 20100111
  Receipt Date: 20100111
  Transmission Date: 20100710
  Serious: No
  Sender: FDA-Public Use
  Company Number: None

PATIENT

DRUGS (2)
  1. CASODEX [Suspect]
     Dosage: 50 MG ONCE QD PO
     Route: 048
  2. KAPIDEX [Suspect]
     Dosage: 60 MG ONCE QD PO
     Route: 048

REACTIONS (1)
  - MEDICATION ERROR [None]
